FAERS Safety Report 9526363 (Version 2)
Quarter: 2014Q1

REPORT INFORMATION
  Report Type: Spontaneous
  Country: GB (occurrence: GB)
  Receive Date: 20130916
  Receipt Date: 20140123
  Transmission Date: 20141002
  Serious: Yes (Death, Other)
  Sender: FDA-Public Use
  Company Number: GB-TEVA-431183ISR

PATIENT
  Age: 80 Year
  Sex: Male
  Weight: 78.92 kg

DRUGS (3)
  1. TERBINAFINE [Suspect]
     Route: 048
     Dates: start: 20130627, end: 20130727
  2. PREDNISOLONE [Concomitant]
  3. OMEPRAZOLE [Concomitant]

REACTIONS (3)
  - Myocardial infarction [Fatal]
  - Stevens-Johnson syndrome [Fatal]
  - Pneumonia [Not Recovered/Not Resolved]
